FAERS Safety Report 22605073 (Version 3)
Quarter: 2023Q4

REPORT INFORMATION
  Report Type: Spontaneous
  Country: US (occurrence: US)
  Receive Date: 20230615
  Receipt Date: 20231204
  Transmission Date: 20240110
  Serious: No
  Sender: FDA-Public Use
  Company Number: US-PFIZER INC-202300218488

PATIENT

DRUGS (1)
  1. GENOTROPIN [Suspect]
     Active Substance: SOMATROPIN
     Dosage: UNK (FROM 0.5 TO 0.8)

REACTIONS (3)
  - Poor quality device used [Unknown]
  - Device delivery system issue [Unknown]
  - Device mechanical issue [Unknown]
